FAERS Safety Report 16037280 (Version 5)
Quarter: 2019Q3

REPORT INFORMATION
  Report Type: Spontaneous
  Country: JP (occurrence: JP)
  Receive Date: 20190305
  Receipt Date: 20190712
  Transmission Date: 20191004
  Serious: Yes (Hospitalization, Other)
  Sender: FDA-Public Use
  Company Number: JP-CELGENEUS-JPN-20190204452

PATIENT
  Age: 9 Decade
  Sex: Female

DRUGS (3)
  1. ISTODAX [Suspect]
     Active Substance: ROMIDEPSIN
     Indication: PERIPHERAL T-CELL LYMPHOMA UNSPECIFIED
     Dosage: UNKNOWN
     Route: 041
  2. SULFAMETHOXAZOLE TRIMETHOPRIM COMBINATION [Concomitant]
     Indication: INFECTION PROPHYLAXIS
     Dosage: UNKNOWN
     Route: 065
  3. ISTODAX [Suspect]
     Active Substance: ROMIDEPSIN
     Dosage: UNKNOWN
     Route: 041

REACTIONS (11)
  - C-reactive protein increased [Recovering/Resolving]
  - Liver disorder [Recovering/Resolving]
  - Neutropenia [Recovering/Resolving]
  - Peripheral T-cell lymphoma unspecified [Not Recovered/Not Resolved]
  - Infection [Unknown]
  - Cytomegalovirus viraemia [Recovered/Resolved]
  - Lymphocyte count decreased [Recovering/Resolving]
  - Pyrexia [Recovering/Resolving]
  - Thrombocytopenia [Recovering/Resolving]
  - Leukopenia [Unknown]
  - Interleukin-2 receptor increased [Unknown]

NARRATIVE: CASE EVENT DATE: 20181016
